FAERS Safety Report 8907062 (Version 1)
Quarter: 2012Q4

REPORT INFORMATION
  Report Type: Report from Study
  Country: JP (occurrence: JP)
  Receive Date: 20121114
  Receipt Date: 20121114
  Transmission Date: 20130627
  Serious: Yes (Other)
  Sender: FDA-Public Use
  Company Number: JP-VERTEX PHARMACEUTICAL INC.-AE-2012-011386

PATIENT
  Age: 60 Year
  Sex: Male

DRUGS (7)
  1. VX-950 (TELAPREVIR) [Suspect]
     Indication: CHRONIC HEPATITIS C
     Dosage: 2250 mg, qd
     Route: 048
     Dates: start: 20120209, end: 20120212
  2. RIBAVIRIN [Suspect]
     Indication: CHRONIC HEPATITIS C
     Dosage: 800 mg, qd
     Route: 048
     Dates: start: 20120209, end: 20120627
  3. PEGINTRON                          /01543001/ [Suspect]
     Indication: CHRONIC HEPATITIS C
     Dosage: 1.27 ?g/kg, QW
     Route: 058
     Dates: start: 20120209
  4. PEGINTRON                          /01543001/ [Suspect]
     Dosage: 1.5 ?g/kg, UNK
     Route: 058
  5. PEGINTRON                          /01543001/ [Suspect]
     Dosage: 100 ?g, UNK
     Route: 058
     Dates: end: 20120627
  6. CONIEL [Concomitant]
     Dosage: 8 mg, qd
     Route: 048
  7. GLACTIV [Concomitant]
     Dosage: 50 mg, qd
     Route: 048

REACTIONS (1)
  - Retinopathy [Recovered/Resolved]
